FAERS Safety Report 5530472-0 (Version None)
Quarter: 2007Q4

REPORT INFORMATION
  Report Type: 
  Country: None (occurrence: None)
  Receive Date: 20071127
  Receipt Date: 20071127
  Transmission Date: 20080405
  Serious: No
  Sender: FDA-Public Use
  Company Number: None

PATIENT
  Age: 54 Year
  Sex: Male

DRUGS (2)
  1. BACLOFEN [Suspect]
     Indication: MUSCLE SPASMS
     Dosage: 10MG TID PO
     Route: 048
     Dates: start: 20070815, end: 20071116
  2. BACLOFEN [Suspect]
     Indication: PAIN
     Dosage: 10MG TID PO
     Route: 048
     Dates: start: 20070815, end: 20071116

REACTIONS (1)
  - SEDATION [None]
